FAERS Safety Report 13688196 (Version 4)
Quarter: 2017Q3

REPORT INFORMATION
  Report Type: Report from Study
  Country: US (occurrence: US)
  Receive Date: 20170626
  Receipt Date: 20170920
  Transmission Date: 20171127
  Serious: Yes (Other)
  Sender: FDA-Public Use
  Company Number: PHEH2017US019390

PATIENT
  Age: 57 Year
  Sex: Male

DRUGS (3)
  1. COSENTYX [Suspect]
     Active Substance: SECUKINUMAB
     Indication: PSORIASIS
  2. METOPROLOL. [Concomitant]
     Active Substance: METOPROLOL
     Indication: BLOOD PRESSURE ABNORMAL
     Route: 065
  3. COSENTYX [Suspect]
     Active Substance: SECUKINUMAB
     Indication: PSORIATIC ARTHROPATHY
     Dosage: 300 MG, QMO
     Route: 058
     Dates: start: 201511

REACTIONS (18)
  - Snoring [Unknown]
  - Psoriatic arthropathy [Unknown]
  - Therapeutic response decreased [Unknown]
  - Scar [Unknown]
  - Weight decreased [Unknown]
  - Injection site bruising [Unknown]
  - Arthralgia [Unknown]
  - Joint stiffness [Unknown]
  - Cataract [Unknown]
  - Diarrhoea [Unknown]
  - Pain [Unknown]
  - Grip strength decreased [Unknown]
  - Arthritis [Unknown]
  - Fatigue [Unknown]
  - Skin disorder [Unknown]
  - Sleep apnoea syndrome [Unknown]
  - Incorrect route of drug administration [Unknown]
  - Swelling [Unknown]

NARRATIVE: CASE EVENT DATE: 20170912
